FAERS Safety Report 5485749-4 (Version None)
Quarter: 2007Q4

REPORT INFORMATION
  Report Type: 
  Country: None (occurrence: None)
  Receive Date: 20071015
  Receipt Date: 20071003
  Transmission Date: 20080405
  Serious: Yes (Death)
  Sender: FDA-Public Use
  Company Number: GB-AMGEN-US243521

PATIENT
  Sex: Male
  Weight: 86.9 kg

DRUGS (5)
  1. ENBREL [Suspect]
     Indication: PSORIATIC ARTHROPATHY
     Dates: start: 20060401
  2. TRAMADOL HCL [Suspect]
     Dosage: OVERDOSE OF UNKNOWN QUANTITY
  3. DICLOFENAC SODIUM [Concomitant]
     Dosage: 150MG FREQUENCY UNKNOWN
     Route: 048
  4. PREDNISOLONE [Concomitant]
     Dosage: 5MG FREQUENCY UNKNOWN
     Route: 048
  5. METHOTREXATE [Concomitant]
     Indication: PSORIATIC ARTHROPATHY
     Dosage: 15MG FREQUENCY UNKNOWN
     Route: 048

REACTIONS (1)
  - OVERDOSE [None]
